FAERS Safety Report 24532802 (Version 1)
Quarter: 2024Q4

REPORT INFORMATION
  Report Type: Spontaneous
  Country: IT (occurrence: IT)
  Receive Date: 20241022
  Receipt Date: 20241022
  Transmission Date: 20250115
  Serious: Yes (Death, Other)
  Sender: AMGEN
  Company Number: IT-AMGEN-ITASP2024206278

PATIENT

DRUGS (4)
  1. CARFILZOMIB [Suspect]
     Active Substance: CARFILZOMIB
     Indication: Plasma cell myeloma refractory
     Dosage: 20 MILLIGRAM/SQ. METER (DAYS 1 AND 2 OF CYCLE 1)
     Route: 040
  2. CARFILZOMIB [Suspect]
     Active Substance: CARFILZOMIB
     Dosage: 56 MILLIGRAM/SQ. METER (DAYS 8, 9, 15, AND 16 OF CYCLE 1; DAYS 1, 2, 8, 9, 15, AND 16 OF SUBSEQUENT
     Route: 040
  3. ISATUXIMAB [Suspect]
     Active Substance: ISATUXIMAB
     Indication: Plasma cell myeloma refractory
     Dosage: 10 MILLIGRAM/KILOGRAM (DAYS 1, 8, 15, AND 22 OF THE FIRST 28-DAY CYCLE; DAYS I AND 15 OF SUBSEQUENT
     Route: 040
  4. DEXAMETHASONE [Suspect]
     Active Substance: DEXAMETHASONE
     Indication: Plasma cell myeloma refractory
     Dosage: 20 MILLIGRAM (INTRAVENOUSLY OR ORALLY (DAYS 1, 2, 8, 9,15, 16, 22, AND 23)
     Route: 065

REACTIONS (12)
  - Death [Fatal]
  - Haematotoxicity [Unknown]
  - Hypertension [Unknown]
  - Tachyarrhythmia [Unknown]
  - Cardiac failure [Unknown]
  - Pulmonary embolism [Unknown]
  - Pneumonia [Unknown]
  - Bacteraemia [Unknown]
  - Plasma cell myeloma [Unknown]
  - Dyspnoea [Unknown]
  - Upper respiratory tract infection [Unknown]
  - Therapy partial responder [Unknown]
